FAERS Safety Report 19183583 (Version 2)
Quarter: 2021Q2

REPORT INFORMATION
  Report Type: Spontaneous
  Country: CH (occurrence: CH)
  Receive Date: 20210427
  Receipt Date: 20210518
  Transmission Date: 20210717
  Serious: Yes (Other)
  Sender: FDA-Public Use
  Company Number: CH-B.I. PHARMACEUTICALS,INC./RIDGEFIELD-2021-BI-099160

PATIENT
  Age: 48 Year
  Sex: Male

DRUGS (5)
  1. PRAMIPEXOLE. [Suspect]
     Active Substance: PRAMIPEXOLE
     Indication: PARKINSON^S DISEASE
     Route: 048
     Dates: start: 20180703, end: 20180814
  2. RASAGILINE. [Concomitant]
     Active Substance: RASAGILINE
     Indication: PARKINSON^S DISEASE
     Dates: start: 2018
  3. PRAMIPEXOLE. [Suspect]
     Active Substance: PRAMIPEXOLE
     Dosage: 0.375 MG/D
     Route: 048
     Dates: start: 20180528, end: 20180703
  4. PRAMIPEXOLE. [Suspect]
     Active Substance: PRAMIPEXOLE
     Route: 048
     Dates: start: 20180814, end: 20190104
  5. PRAMIPEXOLE. [Suspect]
     Active Substance: PRAMIPEXOLE
     Dosage: DOSE REDUCED
     Route: 048
     Dates: start: 20190104, end: 20190228

REACTIONS (5)
  - Hypersexuality [Recovered/Resolved]
  - Personality change [Recovered/Resolved]
  - Hypomania [Recovered/Resolved]
  - Impulse-control disorder [Recovered/Resolved]
  - Abnormal behaviour [Recovered/Resolved]

NARRATIVE: CASE EVENT DATE: 2018
